FAERS Safety Report 9054566 (Version 1)
Quarter: 2013Q1

REPORT INFORMATION
  Report Type: Spontaneous
  Country: US (occurrence: US)
  Receive Date: 20130208
  Receipt Date: 20130208
  Transmission Date: 20140127
  Serious: Yes (Death)
  Sender: FDA-Public Use
  Company Number: US-MYLANLABS-2013S1002148

PATIENT
  Age: 74 Year
  Sex: Male

DRUGS (5)
  1. MORPHINE SULFATE EXTENDED-RELEASE TABLETS [Suspect]
     Indication: PAIN
     Route: 048
     Dates: end: 201301
  2. FENTANYL TRANSDERMAL SYSTEM [Suspect]
     Indication: PAIN
     Dosage: Q72H
     Route: 062
     Dates: start: 201212, end: 20130117
  3. FENTANYL TRANSDERMAL SYSTEM [Suspect]
     Indication: PAIN
     Dosage: Q72H
     Route: 062
     Dates: start: 20130117, end: 20130118
  4. PHENERGAN [Concomitant]
     Indication: NAUSEA
  5. ZOFRAN [Concomitant]
     Indication: NAUSEA

REACTIONS (7)
  - Completed suicide [Fatal]
  - Drug ineffective [Not Recovered/Not Resolved]
  - Pain [Not Recovered/Not Resolved]
  - Thinking abnormal [Not Recovered/Not Resolved]
  - Abnormal dreams [Not Recovered/Not Resolved]
  - Nausea [Not Recovered/Not Resolved]
  - Hyperhidrosis [Not Recovered/Not Resolved]
